FAERS Safety Report 7090327-X (Version None)
Quarter: 2010Q4

REPORT INFORMATION
  Report Type: 
  Country: None (occurrence: None)
  Receive Date: 20101104
  Receipt Date: 20101104
  Transmission Date: 20110411
  Serious: No
  Sender: FDA-Public Use
  Company Number: None

PATIENT
  Age: 89 Year
  Sex: Male

DRUGS (9)
  1. REVLIMID [Suspect]
     Indication: MULTIPLE MYELOMA
     Dosage: 25MG QD 21D/28D ORALLY
     Route: 048
  2. REVLIMID [Concomitant]
  3. DECADRON [Concomitant]
  4. ACYCLOVIR [Concomitant]
  5. PHENYTOIN [Concomitant]
  6. LASIX [Concomitant]
  7. K-TAB [Concomitant]
  8. KETOCONAZOLE SHAMPOO [Concomitant]
  9. CLINDAMYCIN [Concomitant]

REACTIONS (2)
  - NEUROPATHY PERIPHERAL [None]
  - PARAESTHESIA [None]
